FAERS Safety Report 7808474-0 (Version None)
Quarter: 2011Q4

REPORT INFORMATION
  Report Type: 
  Country: None (occurrence: None)
  Receive Date: 20111011
  Receipt Date: 20111011
  Transmission Date: 20120403
  Serious: Yes (Hospitalization)
  Sender: FDA-Public Use
  Company Number: None

PATIENT
  Sex: Male

DRUGS (1)
  1. XELODA [Suspect]
     Dosage: 2000MG BID PO
     Route: 048
     Dates: start: 20110824, end: 20110919

REACTIONS (5)
  - VOMITING [None]
  - HYPOTENSION [None]
  - NAUSEA [None]
  - DIARRHOEA [None]
  - DEHYDRATION [None]
